FAERS Safety Report 8666380 (Version 14)
Quarter: 2014Q1

REPORT INFORMATION
  Report Type: Report from Study
  Country: CA (occurrence: CA)
  Receive Date: 20120716
  Receipt Date: 20140117
  Transmission Date: 20141002
  Serious: Yes (Other)
  Sender: FDA-Public Use
  Company Number: CA-ROCHE-1087430

PATIENT
  Age: 56 Year
  Sex: Male

DRUGS (8)
  1. ZELBORAF [Suspect]
     Indication: METASTATIC MALIGNANT MELANOMA
     Route: 048
     Dates: start: 20120130, end: 20120710
  2. ZELBORAF [Suspect]
     Dosage: DOSE REDUCED
     Route: 048
     Dates: start: 20120725
  3. ZELBORAF [Suspect]
     Route: 048
     Dates: start: 201303
  4. METFORMIN HYDROCHLORIDE [Suspect]
     Indication: DIABETES MELLITUS
     Route: 065
     Dates: start: 201305, end: 201306
  5. TYLENOL [Concomitant]
     Indication: HEADACHE
  6. TYLENOL [Concomitant]
     Indication: ARTHRITIS
  7. CELEBREX [Concomitant]
  8. ALLOPURINOL [Concomitant]

REACTIONS (18)
  - Sunburn [Unknown]
  - Rash [Recovered/Resolved]
  - Blister [Unknown]
  - Diabetes mellitus [Unknown]
  - Blood glucose increased [Recovering/Resolving]
  - Renal failure [Unknown]
  - Carpal tunnel syndrome [Unknown]
  - Arthralgia [Not Recovered/Not Resolved]
  - Pruritus [Recovering/Resolving]
  - Paraesthesia [Recovering/Resolving]
  - Poor quality sleep [Recovered/Resolved]
  - Hypotension [Recovered/Resolved]
  - Headache [Recovering/Resolving]
  - Nausea [Recovered/Resolved]
  - Myalgia [Not Recovered/Not Resolved]
  - Bone pain [Not Recovered/Not Resolved]
  - Blood uric acid increased [Not Recovered/Not Resolved]
  - Local swelling [Unknown]
